FAERS Safety Report 15723432 (Version 1)
Quarter: 2018Q4

REPORT INFORMATION
  Report Type: Spontaneous
  Country: US (occurrence: US)
  Receive Date: 20181214
  Receipt Date: 20181214
  Transmission Date: 20190205
  Serious: No
  Sender: FDA-Public Use
  Company Number: US-SA-2018SA339457

PATIENT

DRUGS (1)
  1. LEMTRADA [Suspect]
     Active Substance: ALEMTUZUMAB
     Dosage: UNK
     Route: 041

REACTIONS (6)
  - Nodule [Unknown]
  - Eye pain [Unknown]
  - Asthenia [Not Recovered/Not Resolved]
  - Visual impairment [Unknown]
  - Central nervous system lesion [Unknown]
  - Tenderness [Unknown]
